FAERS Safety Report 16840191 (Version 1)
Quarter: 2019Q3

REPORT INFORMATION
  Report Type: Spontaneous
  Country: GB (occurrence: GB)
  Receive Date: 20190923
  Receipt Date: 20190923
  Transmission Date: 20191005
  Serious: Yes (Other)
  Sender: FDA-Public Use
  Company Number: GB-PFIZER INC-2019405144

PATIENT
  Age: 26 Year
  Sex: Male
  Weight: 76 kg

DRUGS (3)
  1. SERTRALINE HCL [Suspect]
     Active Substance: SERTRALINE HYDROCHLORIDE
     Dosage: 50 MG, UNK
     Dates: start: 2018, end: 20181130
  2. SERTRALINE HCL [Suspect]
     Active Substance: SERTRALINE HYDROCHLORIDE
     Dosage: 25 MG, UNK
     Dates: start: 20181014, end: 2018
  3. SERTRALINE HCL [Suspect]
     Active Substance: SERTRALINE HYDROCHLORIDE
     Indication: ANXIETY
     Dosage: 100 MG, UNK

REACTIONS (18)
  - Feeling abnormal [Unknown]
  - Breath odour [Unknown]
  - Head discomfort [Unknown]
  - Hypoaesthesia eye [Unknown]
  - Skin odour abnormal [Unknown]
  - Vision blurred [Unknown]
  - Dizziness [Unknown]
  - Taste disorder [Unknown]
  - Malaise [Unknown]
  - Paraesthesia [Unknown]
  - Hypoaesthesia [Unknown]
  - Burning sensation [Unknown]
  - Bruxism [Unknown]
  - Hyperaesthesia [Unknown]
  - Vitreous floaters [Unknown]
  - Chills [Unknown]
  - Withdrawal syndrome [Unknown]
  - Influenza like illness [Unknown]
